FAERS Safety Report 24766667 (Version 2)
Quarter: 2025Q3

REPORT INFORMATION
  Report Type: Spontaneous
  Country: EU (occurrence: EU)
  Receive Date: 20241223
  Receipt Date: 20250809
  Transmission Date: 20251021
  Serious: Yes (Other)
  Sender: ALEXION PHARMACEUTICALS
  Company Number: None

PATIENT
  Age: 94 Year
  Sex: Male

DRUGS (4)
  1. DAPAGLIFLOZIN [Suspect]
     Active Substance: DAPAGLIFLOZIN
     Indication: Cardiac failure
     Dates: end: 20240219
  2. LINEZOLID [Suspect]
     Active Substance: LINEZOLID
     Indication: Infection
     Dates: start: 20240126, end: 20240216
  3. XARELTO [Suspect]
     Active Substance: RIVAROXABAN
     Indication: Cardiac ventricular thrombosis
     Dates: start: 20231006, end: 20240220
  4. ATORVASTATIN [Suspect]
     Active Substance: ATORVASTATIN
     Indication: Dyslipidaemia
     Dates: end: 20240219

REACTIONS (1)
  - Thrombocytopenia [Recovered/Resolved]

NARRATIVE: CASE EVENT DATE: 20240212
